FAERS Safety Report 6648751-2 (Version None)
Quarter: 2010Q1

REPORT INFORMATION
  Report Type: 
  Country: None (occurrence: None)
  Receive Date: 20100324
  Receipt Date: 20100312
  Transmission Date: 20100710
  Serious: Yes (Death, Other)
  Sender: FDA-Public Use
  Company Number: US-PFIZER INC-2010032275

PATIENT
  Sex: Male

DRUGS (4)
  1. NEURONTIN [Suspect]
     Dosage: UNK
  2. TRAMADOL [Suspect]
     Dosage: UNK
  3. LIDODERM [Suspect]
     Dosage: UNK
  4. OXYCODONE [Suspect]
     Dosage: UNK

REACTIONS (7)
  - CARDIAC DISORDER [None]
  - FLUID RETENTION [None]
  - MULTI-ORGAN FAILURE [None]
  - OVERDOSE [None]
  - RESPIRATORY ARREST [None]
  - SOMNOLENCE [None]
  - VOMITING [None]
